FAERS Safety Report 13161144 (Version 1)
Quarter: 2017Q1

REPORT INFORMATION
  Report Type: Spontaneous
  Country: IT (occurrence: IT)
  Receive Date: 20170130
  Receipt Date: 20170130
  Transmission Date: 20170428
  Serious: Yes (Hospitalization, Other)
  Sender: FDA-Public Use
  Company Number: IT-TAKEDA-2017TUS001961

PATIENT
  Age: 69 Year
  Sex: Male

DRUGS (2)
  1. COLCHICINE. [Suspect]
     Active Substance: COLCHICINE
     Indication: GOUT
     Dosage: 4 MG, QD
     Route: 042
  2. COLCHICINE. [Suspect]
     Active Substance: COLCHICINE
     Dosage: 2 MG, QD
     Route: 048

REACTIONS (4)
  - Overdose [Unknown]
  - Toxicity to various agents [Unknown]
  - Incorrect route of drug administration [Unknown]
  - Bone marrow failure [Unknown]
